FAERS Safety Report 9426324 (Version 3)
Quarter: 2013Q4

REPORT INFORMATION
  Report Type: Spontaneous
  Country: JP (occurrence: JP)
  Receive Date: 20130730
  Receipt Date: 20131016
  Transmission Date: 20140711
  Serious: Yes (Hospitalization)
  Sender: FDA-Public Use
  Company Number: JP-MERCK-1307JPN015507

PATIENT
  Age: 69 Year
  Sex: Male

DRUGS (8)
  1. REFLEX [Suspect]
     Indication: DEPRESSION
     Dosage: 15 MG, UNK
     Route: 048
     Dates: start: 20130708, end: 20130722
  2. WYPAX [Concomitant]
     Indication: DEPRESSION
     Dosage: 0.5 MG, UNK
     Route: 048
     Dates: start: 20130708, end: 20130710
  3. ETHYL LOFLAZEPATE [Concomitant]
     Indication: DEPRESSION
     Dosage: 1 MG /DAY
     Route: 048
  4. AMLODIPINE BESYLATE [Concomitant]
     Indication: HYPERTENSION
     Dosage: UNK
     Route: 048
     Dates: start: 2008
  5. CANDESARTAN CILEXETIL [Concomitant]
     Indication: HYPERTENSION
     Dosage: UNK
     Route: 048
     Dates: start: 2008
  6. METFORMIN HYDROCHLORIDE [Concomitant]
     Indication: DIABETES MELLITUS
     Dosage: UNK
     Route: 048
     Dates: start: 2000
  7. MAGNESIUM OXIDE [Concomitant]
     Indication: CONSTIPATION
     Dosage: UNK
     Route: 048
     Dates: start: 2000
  8. INSULIN LISPRO [Concomitant]
     Indication: DIABETES MELLITUS
     Dosage: UNK
     Dates: start: 2000

REACTIONS (1)
  - Drug eruption [Recovered/Resolved]
